FAERS Safety Report 6920905-7 (Version None)
Quarter: 2010Q3

REPORT INFORMATION
  Report Type: 
  Country: None (occurrence: None)
  Receive Date: 20100812
  Receipt Date: 20100811
  Transmission Date: 20110219
  Serious: Yes (Other)
  Sender: FDA-Public Use
  Company Number: DE-SANOFI-AVENTIS-2010SA047411

PATIENT
  Age: 72 Year
  Sex: Female

DRUGS (4)
  1. MULTAQ [Suspect]
     Indication: ATRIAL FIBRILLATION
     Route: 065
     Dates: start: 20100802
  2. BISOPROLOL [Concomitant]
     Route: 065
  3. BISOPROLOL [Concomitant]
     Route: 065
     Dates: start: 20100802
  4. MARCUMAR [Concomitant]
     Route: 065

REACTIONS (2)
  - ATRIAL FIBRILLATION [None]
  - HEART RATE DECREASED [None]
